FAERS Safety Report 8422429-7 (Version None)
Quarter: 2012Q2

REPORT INFORMATION
  Report Type: 
  Country: None (occurrence: None)
  Receive Date: 20120608
  Receipt Date: 20120601
  Transmission Date: 20120825
  Serious: Yes (Hospitalization)
  Sender: FDA-Public Use
  Company Number: FR-PFIZER INC-2012132214

PATIENT
  Age: 83 Year
  Sex: Female
  Weight: 50 kg

DRUGS (11)
  1. PREDNISONE TAB [Suspect]
     Dosage: 40 MG/M2, 1X/DAY (CYCLE 5)
     Route: 048
     Dates: start: 20110113, end: 20110117
  2. CYCLOPHOSPHAMIDE [Suspect]
     Dosage: 400 MG/M2, CYCLIC, ON DAY 1 OF EACH CYCLE
     Route: 042
     Dates: start: 20101015
  3. VINCRISTINE [Suspect]
     Dosage: 1 MG/M2, CYCLIC, ON DAY 1 OF EACH CYCLE
     Route: 042
     Dates: start: 20101015
  4. DOXORUBICIN HCL [Suspect]
     Dosage: 25 MG/M2, SINGLE (CYCLE 5)
     Route: 042
     Dates: start: 20110113
  5. PREDNISONE TAB [Suspect]
     Dosage: 40 MG/M2, CYCLIC, FROM DAY 1 TO DAY 4 OF EACH CYCLE
     Route: 048
     Dates: start: 20101015
  6. NEXIUM [Concomitant]
     Dosage: 40 MG, 1X/DAY
     Route: 048
  7. MABTHERA [Suspect]
     Dosage: 375 MG/M2, CYCLIC, ONE DAY 1 OF EACH CYCLE
     Route: 042
     Dates: start: 20101015
  8. MABTHERA [Suspect]
     Dosage: 375 MG/M2, SINGLE (CYCLE 5)
     Route: 042
     Dates: start: 20110113
  9. CYCLOPHOSPHAMIDE [Suspect]
     Dosage: 400 MG/M2, SINGLE (CYCLE 5)
     Route: 042
     Dates: start: 20110113
  10. VINCRISTINE [Suspect]
     Dosage: 1 MG/M2, SINGLE (CYCLE 5)
     Route: 042
     Dates: start: 20110113
  11. DOXORUBICIN HCL [Suspect]
     Dosage: 25 MG/M2, CYCLIC, ON DAY 1 OF EACH CYCLE
     Route: 042
     Dates: start: 20101015

REACTIONS (2)
  - FEBRILE NEUTROPENIA [None]
  - PNEUMOCYSTIS JIROVECI PNEUMONIA [None]
